FAERS Safety Report 19385515 (Version 1)
Quarter: 2021Q2

REPORT INFORMATION
  Report Type: Spontaneous
  Country: US (occurrence: US)
  Receive Date: 20210605
  Receipt Date: 20210605
  Transmission Date: 20210717
  Serious: Yes (Other)
  Sender: FDA-Public Use
  Company Number: None

PATIENT
  Age: 66 Year
  Sex: Female
  Weight: 51.75 kg

DRUGS (7)
  1. MULTI?VITAMINS [Concomitant]
  2. VEMLIIDY [Concomitant]
  3. OMNIPAQUE [Suspect]
     Active Substance: IOHEXOL
     Indication: ULTRASOUND PELVIS
     Dosage: ?          OTHER FREQUENCY:ONE IV INJECTION;?
     Route: 042
     Dates: start: 20210520, end: 20210520
  4. COENZUYMEQ10 [Concomitant]
  5. HAWTHORN BERRY [Concomitant]
  6. OMNIPAQUE [Suspect]
     Active Substance: IOHEXOL
     Indication: ULTRASOUND ABDOMEN
     Dosage: ?          OTHER FREQUENCY:ONE IV INJECTION;?
     Route: 042
     Dates: start: 20210520, end: 20210520
  7. BILBERRY FRUIT [Concomitant]

REACTIONS (1)
  - Skin exfoliation [None]

NARRATIVE: CASE EVENT DATE: 20210526
